FAERS Safety Report 14396674 (Version 1)
Quarter: 2018Q1

REPORT INFORMATION
  Report Type: Spontaneous
  Country: US (occurrence: US)
  Receive Date: 20180116
  Receipt Date: 20180116
  Transmission Date: 20180509
  Serious: No
  Sender: FDA-Public Use
  Company Number: US-ALLERGAN-1758075US

PATIENT
  Age: 41 Year
  Sex: Female

DRUGS (2)
  1. JUVEDERM [Suspect]
     Active Substance: HYALURONIC ACID
     Indication: PRODUCT USED FOR UNKNOWN INDICATION
     Dosage: UNK, SINGLE
     Dates: start: 20170915, end: 20170915
  2. BOTOX [Suspect]
     Active Substance: ONABOTULINUMTOXINA
     Indication: PRODUCT USED FOR UNKNOWN INDICATION
     Dosage: UNK, SINGLE
     Route: 030
     Dates: start: 20170915, end: 20170915

REACTIONS (4)
  - Sensory disturbance [Recovered/Resolved]
  - Hypersensitivity [Recovered/Resolved]
  - Rash [Recovered/Resolved]
  - Oedema [Recovered/Resolved]

NARRATIVE: CASE EVENT DATE: 20170915
